FAERS Safety Report 4516475-3 (Version None)
Quarter: 2004Q4

REPORT INFORMATION
  Report Type: 
  Country: None (occurrence: None)
  Receive Date: 20041202
  Receipt Date: 20040928
  Transmission Date: 20050328
  Serious: Yes (Hospitalization, Other)
  Sender: FDA-Public Use
  Company Number: PHBS2004JP13007

PATIENT
  Age: 70 Year
  Sex: Female
  Weight: 57 kg

DRUGS (1)
  1. LAMISIL [Suspect]
     Indication: NAIL TINEA
     Dosage: 125 MG/D
     Route: 048
     Dates: start: 20040616, end: 20040616

REACTIONS (16)
  - CIRCULATORY COLLAPSE [None]
  - DEPRESSED LEVEL OF CONSCIOUSNESS [None]
  - DISCOMFORT [None]
  - DRUG ERUPTION [None]
  - ECCHYMOSIS [None]
  - ERYTHEMA [None]
  - FLUSHING [None]
  - GENERALISED ERYTHEMA [None]
  - LYMPHOCYTE PERCENTAGE INCREASED [None]
  - LYMPHOCYTE STIMULATION TEST POSITIVE [None]
  - NEUTROPHIL PERCENTAGE DECREASED [None]
  - PALLOR [None]
  - PRURITUS [None]
  - PYREXIA [None]
  - SHOCK [None]
  - WHITE BLOOD CELL COUNT DECREASED [None]
